FAERS Safety Report 5573527-7 (Version None)
Quarter: 2007Q4

REPORT INFORMATION
  Report Type: 
  Country: None (occurrence: None)
  Receive Date: 20071226
  Receipt Date: 20071219
  Transmission Date: 20080405
  Serious: Yes (Death, Life-Threatening)
  Sender: FDA-Public Use
  Company Number: JP-AVENTIS-200716168EU

PATIENT
  Age: 60 Year
  Sex: Male

DRUGS (11)
  1. URSO                               /00465701/ [Suspect]
     Indication: LIVER DISORDER
     Route: 048
     Dates: start: 20071022
  2. LASIX [Suspect]
     Indication: ASCITES
     Route: 048
     Dates: start: 20071012
  3. CHOLEBRINE [Suspect]
     Route: 048
     Dates: start: 20071031, end: 20071111
  4. HEPSERA [Suspect]
     Indication: HEPATITIS B
     Route: 048
     Dates: start: 20050101
  5. ZEFIX [Suspect]
     Indication: HEPATITIS B
     Route: 048
     Dates: start: 20070913
  6. NEO-MINOPHAGEN C [Suspect]
     Indication: LIVER DISORDER
     Dosage: DOSE: 5B-2B
     Route: 042
     Dates: start: 20071010
  7. GASTER [Suspect]
     Route: 048
     Dates: start: 20071012, end: 20071111
  8. ALDACTONE [Suspect]
     Indication: ASCITES
     Route: 048
     Dates: start: 20071012
  9. LIVACT [Suspect]
     Indication: HYPOPROTEINAEMIA
     Route: 048
     Dates: start: 20071108, end: 20071111
  10. LIVACT [Suspect]
     Indication: HYPOALBUMINAEMIA
     Route: 048
     Dates: start: 20071108, end: 20071111
  11. SOLU-MEDROL [Concomitant]
     Route: 041
     Dates: start: 20071011, end: 20071013

REACTIONS (3)
  - DEATH [None]
  - PLATELET COUNT DECREASED [None]
  - WHITE BLOOD CELL COUNT DECREASED [None]
